FAERS Safety Report 23095596 (Version 1)
Quarter: 2023Q4

REPORT INFORMATION
  Report Type: Spontaneous
  Country: US (occurrence: None)
  Receive Date: 20231019
  Receipt Date: 20231019
  Transmission Date: 20240110
  Serious: Yes (Hospitalization)
  Sender: FDA-Public Use
  Company Number: None

PATIENT
  Age: 73 Year
  Sex: Male
  Weight: 95.7 kg

DRUGS (1)
  1. BACLOFEN [Suspect]
     Active Substance: BACLOFEN
     Dosage: FREQUENCY : 3 TIMES A DAY;?
     Route: 048
     Dates: start: 20220418, end: 20220421

REACTIONS (8)
  - Renal impairment [None]
  - Therapy interrupted [None]
  - Muscle twitching [None]
  - Asthenia [None]
  - Movement disorder [None]
  - Vitamin B12 deficiency [None]
  - Blood magnesium decreased [None]
  - Muscle spasticity [None]

NARRATIVE: CASE EVENT DATE: 20220421
